FAERS Safety Report 16775144 (Version 1)
Quarter: 2019Q3

REPORT INFORMATION
  Report Type: Spontaneous
  Country: CN (occurrence: CN)
  Receive Date: 20190905
  Receipt Date: 20190905
  Transmission Date: 20191005
  Serious: Yes (Death, Life-Threatening, Hospitalization, Other)
  Sender: FDA-Public Use
  Company Number: CN-ACCORD-153053

PATIENT
  Age: 57 Year
  Sex: Male

DRUGS (4)
  1. MYCOPHENOLIC ACID. [Suspect]
     Active Substance: MYCOPHENOLIC ACID
     Indication: IMMUNOSUPPRESSANT DRUG THERAPY
  2. GANCICLOVIR. [Concomitant]
     Active Substance: GANCICLOVIR
     Indication: ANTIBIOTIC PROPHYLAXIS
  3. IMIPENEM [Suspect]
     Active Substance: IMIPENEM
     Indication: ANTIBIOTIC PROPHYLAXIS
  4. TACROLIMUS. [Suspect]
     Active Substance: TACROLIMUS
     Indication: IMMUNOSUPPRESSANT DRUG THERAPY

REACTIONS (10)
  - Haemoglobin decreased [Unknown]
  - Dyspnoea [Unknown]
  - Klebsiella infection [Fatal]
  - Abdominal infection [Fatal]
  - Hypotension [Unknown]
  - Hepatic rupture [Recovered/Resolved]
  - Tachycardia [Unknown]
  - Loss of consciousness [Unknown]
  - Pneumonia [Unknown]
  - Acute kidney injury [Unknown]
